FAERS Safety Report 19843820 (Version 5)
Quarter: 2022Q1

REPORT INFORMATION
  Report Type: Report from Study
  Country: CA (occurrence: CA)
  Receive Date: 20210916
  Receipt Date: 20220113
  Transmission Date: 20220423
  Serious: Yes (Hospitalization, Other)
  Sender: FDA-Public Use
  Company Number: CA-BRISTOL-MYERS SQUIBB COMPANY-BMS-2021-061697

PATIENT
  Age: 74 Year
  Sex: Female
  Weight: 56 kg

DRUGS (4)
  1. ABATACEPT [Suspect]
     Active Substance: ABATACEPT
     Indication: Rheumatoid arthritis
     Dosage: 500 MILLIGRAM, Q4WK
     Route: 042
     Dates: start: 20201208
  2. PREDNISONE [Concomitant]
     Active Substance: PREDNISONE
     Indication: Product used for unknown indication
     Dosage: UNK
     Route: 065
  3. SYNTHROID [Concomitant]
     Active Substance: LEVOTHYROXINE SODIUM
     Indication: Product used for unknown indication
     Dosage: UNK
     Route: 065
  4. PROLIA [Concomitant]
     Active Substance: DENOSUMAB
     Indication: Product used for unknown indication
     Dosage: UNK
     Route: 065

REACTIONS (15)
  - Fall [Unknown]
  - Tendon injury [Unknown]
  - Gingivitis [Unknown]
  - Tendon pain [Unknown]
  - Tooth disorder [Unknown]
  - Dental caries [Unknown]
  - Cranial nerve disorder [Not Recovered/Not Resolved]
  - Concussion [Unknown]
  - Nausea [Recovered/Resolved]
  - Balance disorder [Recovering/Resolving]
  - Headache [Recovering/Resolving]
  - Infusion site extravasation [Unknown]
  - Oropharyngeal pain [Recovered/Resolved]
  - Myalgia [Recovered/Resolved]
  - Fatigue [Recovered/Resolved]

NARRATIVE: CASE EVENT DATE: 20210731
